FAERS Safety Report 9570062 (Version 1)
Quarter: 2013Q3

REPORT INFORMATION
  Report Type: Spontaneous
  Country: US (occurrence: None)
  Receive Date: 20130926
  Receipt Date: 20130926
  Transmission Date: 20140515
  Serious: No
  Sender: FDA-Public Use
  Company Number: None

PATIENT
  Age: 33 Year
  Sex: Male
  Weight: 72.12 kg

DRUGS (1)
  1. CIPRO [Suspect]
     Indication: DIARRHOEA INFECTIOUS
     Dosage: 1 PILL, TWICE DAILY, TAKEN BY MOUTH
     Route: 048
     Dates: start: 20130514, end: 20130515

REACTIONS (3)
  - Feeling abnormal [None]
  - Tendonitis [None]
  - Arthralgia [None]
